FAERS Safety Report 4727495-8 (Version None)
Quarter: 2005Q3

REPORT INFORMATION
  Report Type: 
  Country: None (occurrence: None)
  Receive Date: 20050728
  Receipt Date: 20050721
  Transmission Date: 20060218
  Serious: Yes (Hospitalization, Other)
  Sender: FDA-Public Use
  Company Number: PHEH2005US08153

PATIENT
  Sex: Male

DRUGS (1)
  1. CLOZARIL [Suspect]
     Route: 064

REACTIONS (4)
  - CHORDEE [None]
  - JAUNDICE [None]
  - PENIS DISORDER [None]
  - PREMATURE BABY [None]
